FAERS Safety Report 7463932-6 (Version None)
Quarter: 2011Q2

REPORT INFORMATION
  Report Type: 
  Country: None (occurrence: None)
  Receive Date: 20110506
  Receipt Date: 20110429
  Transmission Date: 20111010
  Serious: Yes (Death, Hospitalization)
  Sender: FDA-Public Use
  Company Number: FR-SANOFI-AVENTIS-2010SA034037

PATIENT
  Age: 71 Year
  Sex: Female

DRUGS (6)
  1. EFFEXOR [Suspect]
     Route: 048
     Dates: start: 20090101
  2. INDAPAMIDE [Suspect]
     Route: 048
     Dates: start: 20070101
  3. CALCIUM CARBONATE [Suspect]
     Route: 048
  4. PLAVIX [Suspect]
     Indication: CEREBROVASCULAR ACCIDENT
     Route: 048
     Dates: start: 20000101
  5. ORENCIA [Suspect]
     Indication: RHEUMATOID ARTHRITIS
     Dosage: 750 MG MONTHLY
     Route: 042
     Dates: start: 20090619
  6. PREDNISONE [Suspect]
     Indication: RHEUMATOID ARTHRITIS
     Route: 048
     Dates: start: 20020101

REACTIONS (2)
  - HERPES ZOSTER [None]
  - VIITH NERVE PARALYSIS [None]
